FAERS Safety Report 11142930 (Version 2)
Quarter: 2015Q3

REPORT INFORMATION
  Report Type: Other
  Country: US (occurrence: US)
  Receive Date: 20150528
  Receipt Date: 20150902
  Transmission Date: 20151125
  Serious: No
  Sender: FDA-Public Use
  Company Number: US-LUPIN PHARMACEUTICALS INC.-2015-01240

PATIENT
  Age: 66 Year
  Sex: Male
  Weight: 87.62 kg

DRUGS (6)
  1. OMEPRAZOLE. [Concomitant]
     Active Substance: OMEPRAZOLE
     Indication: GASTROOESOPHAGEAL REFLUX DISEASE
     Route: 048
     Dates: start: 2015, end: 20150410
  2. MELOXICAM TABLETS USP 7.5 MG [Suspect]
     Active Substance: MELOXICAM
     Indication: INFLAMMATION
  3. CETIRIZINE HCL [Concomitant]
     Active Substance: CETIRIZINE HYDROCHLORIDE
     Indication: PRURITUS
     Route: 065
  4. ZANTAC [Concomitant]
     Active Substance: RANITIDINE HYDROCHLORIDE
     Indication: GASTROOESOPHAGEAL REFLUX DISEASE
  5. ZANTAC [Concomitant]
     Active Substance: RANITIDINE HYDROCHLORIDE
     Indication: PRURITUS
     Route: 065
  6. MELOXICAM TABLETS USP 7.5 MG [Suspect]
     Active Substance: MELOXICAM
     Indication: PAIN
     Route: 048
     Dates: start: 2015, end: 20150410

REACTIONS (1)
  - Chest pain [Recovered/Resolved]

NARRATIVE: CASE EVENT DATE: 201504
